FAERS Safety Report 6790401-9 (Version None)
Quarter: 2010Q2

REPORT INFORMATION
  Report Type: 
  Country: None (occurrence: None)
  Receive Date: 20100624
  Receipt Date: 20100617
  Transmission Date: 20101027
  Serious: Yes (Hospitalization)
  Sender: FDA-Public Use
  Company Number: PHHY2010FR40214

PATIENT
  Age: 81 Year
  Sex: Male

DRUGS (8)
  1. STALEVO 100 [Suspect]
     Indication: PARKINSON'S DISEASE
     Dosage: UNK
     Dates: start: 20100412, end: 20100511
  2. EXELON [Concomitant]
     Dosage: UNK,UNK
  3. VASTAREL [Concomitant]
     Dosage: UNK,UNK
  4. SULFARLEM [Concomitant]
     Dosage: UNK,UNK
  5. ESOMEPRAZOLE [Concomitant]
     Dosage: UNK,UNK
  6. ATARAX [Concomitant]
     Dosage: UNK,UNK
  7. TAMSULOSIN HCL [Concomitant]
     Dosage: UNK,UNK
  8. FORLAX [Concomitant]
     Dosage: UNK,UNK

REACTIONS (1)
  - INTERSTITIAL LUNG DISEASE [None]
